FAERS Safety Report 9900015 (Version 1)
Quarter: 2014Q1

REPORT INFORMATION
  Report Type: Spontaneous
  Country: US (occurrence: US)
  Receive Date: 20140214
  Receipt Date: 20140214
  Transmission Date: 20141002
  Serious: No
  Sender: FDA-Public Use
  Company Number: US-VIVUS-2014V1000005

PATIENT
  Sex: Female
  Weight: 86.26 kg

DRUGS (9)
  1. QSYMIA 3.75MG/23MG [Suspect]
     Indication: WEIGHT DECREASED
     Route: 048
     Dates: start: 201310
  2. QSYMIA 7.5MG/46MG [Suspect]
     Indication: WEIGHT DECREASED
     Route: 048
     Dates: start: 201311
  3. QSYMIA 11.25MG/69MG [Suspect]
     Indication: WEIGHT DECREASED
     Route: 048
  4. QSYMIA 15MG/92MG [Suspect]
     Indication: WEIGHT DECREASED
     Route: 048
  5. TAMOXIFEN [Concomitant]
     Indication: BREAST CANCER
     Dosage: STARTED 2 YEARS AGO
     Route: 048
     Dates: start: 2012
  6. SYNTHROID [Concomitant]
     Indication: HYPOTHYROIDISM
     Dosage: STARTED MORE THAN 20 YEARS AGO
     Route: 048
  7. SIMVASTATIN [Concomitant]
     Indication: BLOOD CHOLESTEROL INCREASED
     Dosage: STARTED 2 YEARS AGO
     Route: 048
     Dates: start: 2012
  8. HCTZ [Concomitant]
     Indication: HYPERTENSION
     Dosage: STARTED 2 YEARS AGO
     Route: 048
     Dates: start: 2012
  9. CELEXA [Concomitant]
     Indication: DEPRESSION
     Dosage: STARTED 10 YEARS AGO
     Route: 048
     Dates: start: 2004

REACTIONS (4)
  - Abdominal discomfort [Not Recovered/Not Resolved]
  - Headache [Not Recovered/Not Resolved]
  - Diarrhoea [Not Recovered/Not Resolved]
  - Drug dispensing error [Not Recovered/Not Resolved]
